FAERS Safety Report 9089523 (Version 1)
Quarter: 2013Q1

REPORT INFORMATION
  Report Type: Spontaneous
  Country: US (occurrence: US)
  Receive Date: 20130201
  Receipt Date: 20130201
  Transmission Date: 20140127
  Serious: No
  Sender: FDA-Public Use
  Company Number: US-ASTRAZENECA-2012SE96332

PATIENT
  Age: 52 Year
  Sex: Male
  Weight: 104.3 kg

DRUGS (6)
  1. SYMBICORT [Suspect]
     Indication: ASTHMA
     Dosage: 80/4.5 ?G, TWO PUFFS, TWO TIMES A DAY
     Route: 055
     Dates: start: 2009, end: 2012
  2. SYMBICORT [Suspect]
     Indication: ASTHMA
     Dosage: 160/4.5 ?G,2, TWO TIMES A DAY
     Route: 055
     Dates: start: 2012
  3. SINGULAIR [Concomitant]
     Indication: HYPERSENSITIVITY
  4. ZYRTEC [Concomitant]
     Indication: HYPERSENSITIVITY
  5. SPIRIVA [Concomitant]
     Indication: ASTHMA
  6. ALBUTEROL [Concomitant]
     Indication: ASTHMA

REACTIONS (3)
  - Feeling abnormal [Not Recovered/Not Resolved]
  - Condition aggravated [Unknown]
  - Drug effect incomplete [Not Recovered/Not Resolved]
